FAERS Safety Report 10334830 (Version 1)
Quarter: 2014Q3

REPORT INFORMATION
  Report Type: Report from Study
  Country: TN (occurrence: TN)
  Receive Date: 20140723
  Receipt Date: 20140723
  Transmission Date: 20150326
  Serious: Yes (Death)
  Sender: FDA-Public Use
  Company Number: TN-SA-2014SA095166

PATIENT
  Age: 61 Year
  Sex: Female

DRUGS (7)
  1. CRESTOR [Concomitant]
     Active Substance: ROSUVASTATIN CALCIUM
     Route: 048
  2. AMLOR [Concomitant]
     Active Substance: AMLODIPINE BESYLATE
     Route: 048
  3. CORDARONE [Concomitant]
     Active Substance: AMIODARONE HYDROCHLORIDE
     Route: 048
  4. HYPOTEN [Concomitant]
     Route: 048
  5. PLAVIX [Suspect]
     Active Substance: CLOPIDOGREL BISULFATE
     Indication: CORONARY ARTERY DISEASE
     Dosage: 75/D
     Route: 048
     Dates: start: 20130713, end: 20130728
  6. KARDEGIC [Concomitant]
     Active Substance: ASPIRIN LYSINE
     Route: 048
  7. CINCOR [Concomitant]
     Route: 048

REACTIONS (1)
  - Cardiac arrest [Fatal]

NARRATIVE: CASE EVENT DATE: 20130728
